FAERS Safety Report 20658538 (Version 1)
Quarter: 2022Q1

REPORT INFORMATION
  Report Type: Spontaneous
  Country: FR (occurrence: FR)
  Receive Date: 20220331
  Receipt Date: 20220331
  Transmission Date: 20220423
  Serious: Yes (Other)
  Sender: FDA-Public Use
  Company Number: None

PATIENT
  Age: 41 Year
  Sex: Male

DRUGS (1)
  1. SUNITINIB [Suspect]
     Active Substance: SUNITINIB
     Indication: Sarcoma
     Dosage: UNK
     Route: 048
     Dates: start: 201601, end: 201607

REACTIONS (1)
  - Extraskeletal ossification [Not Recovered/Not Resolved]

NARRATIVE: CASE EVENT DATE: 20160701
